FAERS Safety Report 4427049-7 (Version None)
Quarter: 2004Q3

REPORT INFORMATION
  Report Type: 
  Country: None (occurrence: None)
  Receive Date: 20040811
  Receipt Date: 20040729
  Transmission Date: 20050211
  Serious: Yes (Hospitalization)
  Sender: FDA-Public Use
  Company Number: 2004052144

PATIENT
  Sex: Male

DRUGS (1)
  1. ZOLOFT [Suspect]
     Indication: DEPRESSION

REACTIONS (17)
  - ACUTE RESPIRATORY DISTRESS SYNDROME [None]
  - ARTHROPATHY [None]
  - CARDIOPULMONARY FAILURE [None]
  - COGNITIVE DISORDER [None]
  - COLLAPSE OF LUNG [None]
  - CONVULSION [None]
  - FEAR [None]
  - HYPOAESTHESIA [None]
  - LUNG INFECTION [None]
  - PAIN [None]
  - POLYNEUROPATHY [None]
  - POST PROCEDURAL COMPLICATION [None]
  - PULMONARY OEDEMA [None]
  - RENAL FAILURE ACUTE [None]
  - RESPIRATORY FAILURE [None]
  - RESPIRATORY TRACT HAEMORRHAGE [None]
  - SECRETION DISCHARGE [None]
